FAERS Safety Report 25534220 (Version 5)
Quarter: 2025Q3

REPORT INFORMATION
  Report Type: Spontaneous
  Country: TR (occurrence: TR)
  Receive Date: 20250709
  Receipt Date: 20250827
  Transmission Date: 20251020
  Serious: No
  Sender: PFIZER
  Company Number: TR-PFIZER INC-202500137062

PATIENT
  Age: 46 Year
  Sex: Female
  Weight: 70 kg

DRUGS (1)
  1. ENBREL [Suspect]
     Active Substance: ETANERCEPT
     Indication: Rheumatoid arthritis
     Dosage: 1 DF, WEEKLY
     Route: 058
     Dates: start: 20230621

REACTIONS (1)
  - Device failure [Unknown]
